FAERS Safety Report 4947949-9 (Version None)
Quarter: 2006Q1

REPORT INFORMATION
  Report Type: 
  Country: None (occurrence: None)
  Receive Date: 20060313
  Receipt Date: 20060303
  Transmission Date: 20060701
  Serious: Yes (Hospitalization)
  Sender: FDA-Public Use
  Company Number: CIP06000544

PATIENT
  Age: 82 Year
  Sex: Female

DRUGS (4)
  1. ACTONEL [Suspect]
     Indication: OSTEOPOROSIS
     Dosage: 35 MG ONCE WEEKLY ORAL
     Route: 048
     Dates: start: 20060216, end: 20060303
  2. ENALAPRIL MALEATE [Suspect]
     Indication: HYPERTENSIVE CARDIOMYOPATHY
     Dosage: 10 MG DAILY ORAL
     Route: 048
     Dates: start: 20060218, end: 20060226
  3. MINITRAN (GLYCERYL TRINITRATE) PATCH [Suspect]
     Indication: ISCHAEMIC CARDIOMYOPATHY
     Dosage: 5 MG EVERY 24 HOURS, TRANSDERMAL
     Route: 062
     Dates: start: 20050101, end: 20060303
  4. MEDROL [Concomitant]

REACTIONS (4)
  - BRONCHOSTENOSIS [None]
  - COUGH [None]
  - DYSPNOEA [None]
  - HEART RATE INCREASED [None]
